FAERS Safety Report 6330501-0 (Version None)
Quarter: 2009Q3

REPORT INFORMATION
  Report Type: 
  Country: None (occurrence: None)
  Receive Date: 20090827
  Receipt Date: 20080807
  Transmission Date: 20100115
  Serious: No
  Sender: FDA-Public Use
  Company Number: A0737979A

PATIENT
  Age: 7 Year
  Sex: Male
  Weight: 25 kg

DRUGS (2)
  1. ACYCLOVIR [Suspect]
     Indication: HERPES VIRUS INFECTION
     Route: 048
  2. NO CONCURRENT MEDICATION [Concomitant]

REACTIONS (2)
  - RENAL CYST [None]
  - RENAL DISORDER [None]
